FAERS Safety Report 13181445 (Version 2)
Quarter: 2017Q1

REPORT INFORMATION
  Report Type: Spontaneous
  Country: US (occurrence: US)
  Receive Date: 20170202
  Receipt Date: 20170223
  Transmission Date: 20170428
  Serious: Yes (Hospitalization)
  Sender: FDA-Public Use
  Company Number: US-PFIZER INC-2017046786

PATIENT
  Age: 65 Year
  Sex: Male

DRUGS (1)
  1. INLYTA [Suspect]
     Active Substance: AXITINIB
     Indication: LUNG NEOPLASM MALIGNANT
     Dosage: 3 MG, 2X/DAY
     Dates: start: 201602

REACTIONS (3)
  - Neoplasm progression [Recovered/Resolved]
  - Product use issue [Unknown]
  - Arthralgia [Unknown]

NARRATIVE: CASE EVENT DATE: 201609
